FAERS Safety Report 10393998 (Version 6)
Quarter: 2014Q4

REPORT INFORMATION
  Report Type: Spontaneous
  Country: DE (occurrence: DE)
  Receive Date: 20140819
  Receipt Date: 20141208
  Transmission Date: 20150528
  Serious: Yes (Hospitalization, Other)
  Sender: FDA-Public Use
  Company Number: DE-TEVA-501483GER

PATIENT
  Age: 50 Year
  Sex: Male
  Weight: 66 kg

DRUGS (7)
  1. MCP-RATIOPHARM 10 MG TABLETTEN [Suspect]
     Active Substance: METOCLOPRAMIDE
     Indication: COLONOSCOPY
     Dosage: 10 MILLIGRAM DAILY;
     Route: 048
     Dates: start: 20120413, end: 20120413
  2. MCP-RATIOPHARM 10 MG TABLETTEN [Suspect]
     Active Substance: METOCLOPRAMIDE
     Indication: HEADACHE
     Dosage: 20 MILLIGRAM DAILY;
     Route: 048
     Dates: start: 20140611, end: 20140611
  3. MCP-RATIOPHARM 10 MG TABLETTEN [Suspect]
     Active Substance: METOCLOPRAMIDE
     Indication: NAUSEA
     Dosage: WHEN REQUIRED
     Route: 048
     Dates: start: 20041005
  4. PENTASA 500 MG [Concomitant]
     Indication: CROHN^S DISEASE
     Dosage: 500 MILLIGRAM DAILY;
     Route: 048
     Dates: start: 20041005
  5. MCP-RATIOPHARM 10 MG TABLETTEN [Suspect]
     Active Substance: METOCLOPRAMIDE
     Indication: SURGERY
  6. ENTOCORT [Concomitant]
     Active Substance: BUDESONIDE
     Indication: CROHN^S DISEASE
     Route: 048
     Dates: start: 20041005
  7. MCP-RATIOPHARM 10 MG TABLETTEN [Suspect]
     Active Substance: METOCLOPRAMIDE
     Indication: ERUCTATION

REACTIONS (11)
  - Oromandibular dystonia [Unknown]
  - Speech disorder [Not Recovered/Not Resolved]
  - Trismus [Recovered/Resolved]
  - Muscle spasms [Unknown]
  - Tongue injury [Not Recovered/Not Resolved]
  - Oromandibular dystonia [Not Recovered/Not Resolved]
  - Pain in extremity [Not Recovered/Not Resolved]
  - Musculoskeletal pain [Not Recovered/Not Resolved]
  - Myalgia [Not Recovered/Not Resolved]
  - Spinal pain [Not Recovered/Not Resolved]
  - Tooth injury [Not Recovered/Not Resolved]

NARRATIVE: CASE EVENT DATE: 20140430
